FAERS Safety Report 6841163-8 (Version None)
Quarter: 2010Q3

REPORT INFORMATION
  Report Type: 
  Country: None (occurrence: None)
  Receive Date: 20100714
  Receipt Date: 20070628
  Transmission Date: 20110219
  Serious: No
  Sender: FDA-Public Use
  Company Number: US-PFIZER INC-2007055022

PATIENT
  Sex: Female
  Weight: 61.2 kg

DRUGS (7)
  1. CHANTIX [Suspect]
     Indication: SMOKING CESSATION THERAPY
     Route: 048
     Dates: start: 20070615
  2. SYNTHROID [Concomitant]
  3. VALSARTAN [Concomitant]
  4. ACETYLSALICYLIC ACID [Concomitant]
  5. CRESTOR [Concomitant]
  6. ZETIA [Concomitant]
  7. VITAMINS [Concomitant]

REACTIONS (1)
  - NAUSEA [None]
